FAERS Safety Report 5503081-7 (Version None)
Quarter: 2007Q4

REPORT INFORMATION
  Report Type: 
  Country: None (occurrence: None)
  Receive Date: 20071029
  Receipt Date: 20071011
  Transmission Date: 20080405
  Serious: Yes (Life-Threatening, Other)
  Sender: FDA-Public Use
  Company Number: VER_00078_2007

PATIENT
  Sex: Male
  Weight: 184 kg

DRUGS (4)
  1. EPINEPHRINE [Suspect]
     Indication: HYPERSENSITIVITY
     Dosage: 0.3 MG INTRAMUSCULAR/SUBCUTANEOUS
     Route: 030
  2. LIPITOR [Concomitant]
  3. FLOMAX [Concomitant]
  4. OMEPRAZOLE [Concomitant]

REACTIONS (5)
  - DEVICE FAILURE [None]
  - DRUG EFFECT DECREASED [None]
  - NAUSEA [None]
  - PHARMACEUTICAL PRODUCT COMPLAINT [None]
  - WRONG TECHNIQUE IN DRUG USAGE PROCESS [None]
